FAERS Safety Report 14283431 (Version 1)
Quarter: 2017Q4

REPORT INFORMATION
  Report Type: Spontaneous
  Country: US (occurrence: None)
  Receive Date: 20171213
  Receipt Date: 20171213
  Transmission Date: 20180321
  Serious: Yes (Hospitalization)
  Sender: FDA-Public Use
  Company Number: None

PATIENT
  Age: 23 Year
  Sex: Female

DRUGS (7)
  1. CETIRIZINE [Concomitant]
     Active Substance: CETIRIZINE HYDROCHLORIDE
  2. PROVENTIL [Concomitant]
     Active Substance: ALBUTEROL
  3. VENTOLIN [Concomitant]
     Active Substance: ALBUTEROL SULFATE
  4. XOLAIR [Suspect]
     Active Substance: OMALIZUMAB
     Indication: ASTHMA
     Route: 048
     Dates: start: 20170731
  5. MONTELUKAST [Concomitant]
     Active Substance: MONTELUKAST SODIUM
  6. EPIPEN [Concomitant]
     Active Substance: EPINEPHRINE
  7. FERROUS SULF [Concomitant]
     Active Substance: FERROUS SULFATE

REACTIONS (1)
  - Metabolic surgery [None]
